FAERS Safety Report 8918839 (Version 1)
Quarter: 2012Q4

REPORT INFORMATION
  Report Type: Spontaneous
  Country: US (occurrence: None)
  Receive Date: 20121115
  Receipt Date: 20121115
  Transmission Date: 20130627
  Serious: Yes (Hospitalization)
  Sender: FDA-Public Use
  Company Number: None

PATIENT
  Age: 89 Year
  Sex: Male
  Weight: 74.9 kg

DRUGS (1)
  1. PANTOPRAZOLE, 40 MG [Suspect]
     Indication: GASTROINTESTINAL DISORDER
     Route: 048

REACTIONS (7)
  - Blood creatinine increased [None]
  - Laceration [None]
  - Fall [None]
  - Dizziness [None]
  - Oedema [None]
  - Urinary tract infection [None]
  - Tubulointerstitial nephritis [None]
